FAERS Safety Report 7787164-7 (Version None)
Quarter: 2011Q3

REPORT INFORMATION
  Report Type: 
  Country: None (occurrence: None)
  Receive Date: 20110929
  Receipt Date: 20110715
  Transmission Date: 20111222
  Serious: No
  Sender: FDA-Public Use
  Company Number: US-BAYER-2011-063071

PATIENT
  Sex: Female

DRUGS (2)
  1. TUMS [CALCIUM CARBONATE] [Concomitant]
     Dosage: 6 DF, UNK
     Route: 048
  2. ALEVE (CAPLET) [Suspect]
     Dosage: 3 DF, UNK
     Route: 048

REACTIONS (1)
  - PAIN [None]
